FAERS Safety Report 17977166 (Version 2)
Quarter: 2020Q3

REPORT INFORMATION
  Report Type: Spontaneous
  Country: JP (occurrence: JP)
  Receive Date: 20200702
  Receipt Date: 20200717
  Transmission Date: 20201103
  Serious: Yes (Hospitalization)
  Sender: FDA-Public Use
  Company Number: JP-ROCHE-2629148

PATIENT
  Age: 0 Day
  Sex: Female
  Weight: 2.58 kg

DRUGS (13)
  1. RELVAR [Concomitant]
     Active Substance: FLUTICASONE FUROATE\VILANTEROL TRIFENATATE
     Indication: ASTHMA
     Route: 064
  2. PRANLUKAST [Concomitant]
     Active Substance: PRANLUKAST
     Indication: DERMATITIS ATOPIC
  3. LANTUS XR [Concomitant]
     Active Substance: INSULIN GLARGINE
     Route: 064
     Dates: start: 20190910, end: 20200520
  4. INSULIN [Concomitant]
     Active Substance: INSULIN NOS
     Route: 064
     Dates: start: 20190910, end: 20191219
  5. INSULIN [Concomitant]
     Active Substance: INSULIN NOS
     Route: 064
     Dates: start: 20200507
  6. ALECENSA [Suspect]
     Active Substance: ALECTINIB HYDROCHLORIDE
     Route: 064
     Dates: start: 20191008
  7. HUMALOG [Concomitant]
     Active Substance: INSULIN LISPRO
     Indication: DIABETES MELLITUS
     Route: 064
     Dates: start: 20190910, end: 20200520
  8. NEO?MEDROL EE [Concomitant]
     Indication: DERMATITIS ATOPIC
     Route: 064
  9. CILOSTAZOL. [Suspect]
     Active Substance: CILOSTAZOL
     Indication: CEREBRAL INFARCTION
  10. PRANLUKAST [Concomitant]
     Active Substance: PRANLUKAST
     Indication: ASTHMA
     Route: 064
  11. ALECENSA [Suspect]
     Active Substance: ALECTINIB HYDROCHLORIDE
     Indication: NON-SMALL CELL LUNG CANCER
     Route: 064
     Dates: start: 20191008
  12. CILOSTAZOL. [Suspect]
     Active Substance: CILOSTAZOL
     Indication: MOYAMOYA DISEASE
     Route: 064
     Dates: start: 20190913, end: 20200402
  13. MEPTIN AIR [Concomitant]
     Active Substance: PROCATEROL HYDROCHLORIDE
     Route: 064

REACTIONS (3)
  - Ventricular septal defect [Not Recovered/Not Resolved]
  - Foetal exposure during pregnancy [Unknown]
  - Poor feeding infant [Unknown]

NARRATIVE: CASE EVENT DATE: 20200521
